FAERS Safety Report 24892374 (Version 1)
Quarter: 2025Q1

REPORT INFORMATION
  Report Type: Spontaneous
  Country: ZA (occurrence: ZA)
  Receive Date: 20250128
  Receipt Date: 20250128
  Transmission Date: 20250409
  Serious: Yes (Disabling)
  Sender: AMGEN
  Company Number: ZA-SERVIER-S24018186

PATIENT
  Age: 85 Year
  Sex: Female

DRUGS (11)
  1. IVABRADINE HYDROCHLORIDE [Suspect]
     Active Substance: IVABRADINE HYDROCHLORIDE
     Indication: Angina pectoris
     Dosage: 5 MG TAKE ONE TABLET TWICE A DAY
     Route: 048
  2. FLUTICASONE PROPIONATE\SALMETEROL XINAFOATE [Concomitant]
     Active Substance: FLUTICASONE PROPIONATE\SALMETEROL XINAFOATE
     Indication: Asthma
     Route: 055
  3. ALBUTEROL SULFATE [Concomitant]
     Active Substance: ALBUTEROL SULFATE
     Indication: Bronchospasm
     Route: 055
  4. LEVALBUTEROL HYDROCHLORIDE [Concomitant]
     Active Substance: LEVALBUTEROL HYDROCHLORIDE
     Indication: Asthma
     Route: 045
  5. ALENDRONATE SODIUM [Concomitant]
     Active Substance: ALENDRONATE SODIUM
     Indication: Osteopetrosis
     Dosage: 70 MG TAKE ONE TABLET PER WEEK
     Route: 048
  6. SIMVASTATIN [Concomitant]
     Active Substance: SIMVASTATIN
     Indication: Blood cholesterol
     Dosage: 20 MG TAKE ONE TABLET IN THE EVENING
     Route: 048
  7. TIOTROPIUM BROMIDE [Concomitant]
     Active Substance: TIOTROPIUM BROMIDE
     Indication: Chronic obstructive pulmonary disease
     Dosage: 5 MG TAKE ONE TABLET TWICE A DAY
     Route: 048
  8. ECOTRIN [Concomitant]
     Active Substance: ASPIRIN
     Indication: Anticoagulant therapy
     Dosage: 81 MG TAKE ONE TABLET THREE TIMES A WEEK
     Route: 048
  9. CLOBETASOL [Concomitant]
     Active Substance: CLOBETASOL
     Indication: Product used for unknown indication
     Route: 061
  10. CITRIC ACID MONOHYDRATE\SODIUM BICARBONATE\SODIUM CITRATE\TARTARIC ACI [Concomitant]
     Active Substance: CITRIC ACID MONOHYDRATE\SODIUM BICARBONATE\SODIUM CITRATE\TARTARIC ACID
     Indication: Product used for unknown indication
     Dosage: 10ML IN WATER THREE TIMES DAILY
     Route: 048
  11. TELMISARTAN [Concomitant]
     Active Substance: TELMISARTAN
     Indication: Hypertension
     Dosage: 80 MG, QD
     Route: 048

REACTIONS (1)
  - Bedridden [Unknown]
